FAERS Safety Report 14124689 (Version 6)
Quarter: 2018Q1

REPORT INFORMATION
  Report Type: Report from Study
  Country: US (occurrence: US)
  Receive Date: 20171025
  Receipt Date: 20180216
  Transmission Date: 20180508
  Serious: Yes (Death, Hospitalization, Other)
  Sender: FDA-Public Use
  Company Number: US-GILEAD-2017-0301018

PATIENT
  Age: 76 Year
  Sex: Female
  Weight: 102.95 kg

DRUGS (24)
  1. CALCIUM CARBONATE. [Concomitant]
     Active Substance: CALCIUM CARBONATE
  2. ASPIRIN 81 [Concomitant]
     Active Substance: ASPIRIN
  3. OXYGEN. [Concomitant]
     Active Substance: OXYGEN
  4. MULTIVITAMIN                       /00097801/ [Concomitant]
     Active Substance: VITAMINS
  5. CALCITRIOL. [Concomitant]
     Active Substance: CALCITRIOL
  6. ALBUTEROL                          /00139501/ [Concomitant]
     Active Substance: ALBUTEROL
  7. CHOLECALCIFEROL [Concomitant]
     Active Substance: CHOLECALCIFEROL
  8. LYSINE [Concomitant]
     Active Substance: LYSINE
  9. METOPROLOL. [Concomitant]
     Active Substance: METOPROLOL
  10. XALATAN [Concomitant]
     Active Substance: LATANOPROST
  11. GABAPENTIN. [Concomitant]
     Active Substance: GABAPENTIN
  12. FERROUS SULFATE. [Concomitant]
     Active Substance: FERROUS SULFATE
  13. ELDERBERRY                         /01651601/ [Concomitant]
  14. TRAMADOL. [Concomitant]
     Active Substance: TRAMADOL
  15. SENOKOT [Concomitant]
     Active Substance: SENNOSIDES
  16. RANITIDINE. [Concomitant]
     Active Substance: RANITIDINE
  17. INSULIN GLARGINE [Concomitant]
     Active Substance: INSULIN GLARGINE
  18. AMBRISENTAN [Suspect]
     Active Substance: AMBRISENTAN
     Indication: PULMONARY HYPERTENSION
     Dosage: 5 MG, QD
     Route: 065
     Dates: start: 20150310
  19. ZOLPIDEM [Concomitant]
     Active Substance: ZOLPIDEM\ZOLPIDEM TARTRATE
  20. FUROSEMIDE. [Concomitant]
     Active Substance: FUROSEMIDE
  21. ATORVASTATIN [Concomitant]
     Active Substance: ATORVASTATIN
  22. AMLODIPINE [Concomitant]
     Active Substance: AMLODIPINE BESYLATE
  23. IPRATROPIUM [Concomitant]
     Active Substance: IPRATROPIUM
  24. CINNAMON                           /01647501/ [Concomitant]
     Active Substance: CINNAMON

REACTIONS (7)
  - Dyspnoea [Unknown]
  - Pulmonary hypertension [Unknown]
  - Oedema peripheral [Unknown]
  - Fluid retention [Unknown]
  - Respiratory failure [Unknown]
  - Death [Fatal]
  - Cardiac failure [Unknown]

NARRATIVE: CASE EVENT DATE: 201710
